FAERS Safety Report 18612850 (Version 3)
Quarter: 2021Q1

REPORT INFORMATION
  Report Type: Report from Study
  Country: KR (occurrence: KR)
  Receive Date: 20201214
  Receipt Date: 20210307
  Transmission Date: 20210419
  Serious: Yes (Hospitalization, Other)
  Sender: FDA-Public Use
  Company Number: KR-B.I. PHARMACEUTICALS,INC./RIDGEFIELD-2020-BI-066380

PATIENT
  Age: 84 Year
  Sex: Male
  Weight: 56.4 kg

DRUGS (7)
  1. ASPIRIN PROTECT [Concomitant]
     Active Substance: ASPIRIN
     Indication: PRODUCT USED FOR UNKNOWN INDICATION
  2. GILOTRIF [Suspect]
     Active Substance: AFATINIB
     Indication: LUNG NEOPLASM MALIGNANT
     Route: 048
     Dates: start: 20160721, end: 201704
  3. GILOTRIF [Suspect]
     Active Substance: AFATINIB
     Route: 048
  4. SEVIKAR HCT [Concomitant]
     Active Substance: AMLODIPINE BESYLATE\HYDROCHLOROTHIAZIDE\OLMESARTAN MEDOXOMIL
     Indication: PRODUCT USED FOR UNKNOWN INDICATION
     Dosage: 5/40/12.5 MG , 1 IN 1 DAY
  5. GILOTRIF [Suspect]
     Active Substance: AFATINIB
     Route: 048
  6. SERMION [NICERGOLINE] [Concomitant]
     Indication: PRODUCT USED FOR UNKNOWN INDICATION
  7. LIVALO [Concomitant]
     Active Substance: PITAVASTATIN CALCIUM
     Indication: PRODUCT USED FOR UNKNOWN INDICATION

REACTIONS (5)
  - Chronic kidney disease [Recovered/Resolved]
  - Diarrhoea [Recovered/Resolved]
  - Paronychia [Not Recovered/Not Resolved]
  - Acute kidney injury [Recovered/Resolved]
  - Urticaria [Recovered/Resolved]

NARRATIVE: CASE EVENT DATE: 201607
